FAERS Safety Report 11248075 (Version 1)
Quarter: 2015Q3

REPORT INFORMATION
  Report Type: Spontaneous
  Country: US (occurrence: US)
  Receive Date: 20150708
  Receipt Date: 20150708
  Transmission Date: 20151125
  Serious: No
  Sender: FDA-Public Use
  Company Number: US-PFIZER INC-2015220855

PATIENT
  Age: 4 Year
  Sex: Male

DRUGS (1)
  1. CHILDRENS ADVIL COLD [Suspect]
     Active Substance: IBUPROFEN\PSEUDOEPHEDRINE HYDROCHLORIDE
     Indication: PYREXIA
     Dosage: (A TEASPOON AND A HALF)
     Route: 048

REACTIONS (2)
  - Extra dose administered [Unknown]
  - Somnolence [Unknown]
